FAERS Safety Report 6956684-7 (Version None)
Quarter: 2010Q3

REPORT INFORMATION
  Report Type: 
  Country: None (occurrence: None)
  Receive Date: 20100830
  Receipt Date: 20100819
  Transmission Date: 20110219
  Serious: Yes (Other)
  Sender: FDA-Public Use
  Company Number: US-ASTRAZENECA-2010SE39169

PATIENT
  Age: 53 Year
  Sex: Female
  Weight: 86.8 kg

DRUGS (3)
  1. TOPROL-XL [Suspect]
     Route: 048
     Dates: start: 20090727
  2. SUNITINIB MALATE [Suspect]
     Indication: NON-SMALL CELL LUNG CANCER
     Route: 048
     Dates: start: 20090626, end: 20090805
  3. LOSARTAN POTASSIUM AND HYDROCHLOROTHIAZIDE [Suspect]
     Dosage: 10025 DAILY
     Route: 065
     Dates: start: 19950101

REACTIONS (2)
  - HYPOKALAEMIA [None]
  - LEFT VENTRICULAR DYSFUNCTION [None]
